FAERS Safety Report 9120125 (Version 1)
Quarter: 2013Q1

REPORT INFORMATION
  Report Type: Spontaneous
  Country: US (occurrence: US)
  Receive Date: 20130226
  Receipt Date: 20130226
  Transmission Date: 20140127
  Serious: Yes (Death, Hospitalization)
  Sender: FDA-Public Use
  Company Number: US-JNJFOC-20120809889

PATIENT
  Age: 10 Year
  Sex: Male
  Weight: 31.8 kg

DRUGS (13)
  1. FENTANYL [Suspect]
     Indication: PRODUCT USED FOR UNKNOWN INDICATION
     Route: 062
  2. CYTARABINE [Suspect]
     Indication: PRODUCT USED FOR UNKNOWN INDICATION
     Dosage: 1210 MG??LAST ADMINISTERED DATE 07-JUN-2012
     Route: 042
     Dates: start: 20120607
  3. DAUNORUBICIN [Suspect]
     Indication: PRODUCT USED FOR UNKNOWN INDICATION
     Dosage: LAST ADMINISTERED DATE 05-JUN-2012
     Route: 042
     Dates: start: 20120605
  4. ETOPOSIDE [Suspect]
     Indication: PRODUCT USED FOR UNKNOWN INDICATION
     Dosage: LAST ADMINISTERED DATE 05-JUN-2012
     Route: 042
     Dates: start: 20120605
  5. UNSPECIFIED INGREDIENT [Suspect]
     Indication: PRODUCT USED FOR UNKNOWN INDICATION
     Dosage: LAST ADMINISTERED DATE 01-JUN-2012
     Route: 042
     Dates: start: 20120601
  6. ATIVAN [Suspect]
     Indication: PRODUCT USED FOR UNKNOWN INDICATION
     Dosage: LAST ADMINISTERED DATE 01-JUN-2012
     Route: 042
  7. CEFDINIR [Suspect]
     Indication: PRODUCT USED FOR UNKNOWN INDICATION
     Dosage: LAST ADMINISTERED DATE 01-JUN-2012
     Route: 042
  8. VANCOMYCIN [Suspect]
     Indication: PRODUCT USED FOR UNKNOWN INDICATION
     Dosage: LAST ADMINISTERED DATE 01-JUN-2012
     Route: 042
  9. GENTAMICIN [Suspect]
     Indication: PRODUCT USED FOR UNKNOWN INDICATION
     Dosage: LAST ADMINISTERED DATE 01-JUN-2012
     Route: 042
  10. AZITHROMYCIN [Suspect]
     Indication: PRODUCT USED FOR UNKNOWN INDICATION
     Dosage: LAST ADMINISTERED DATE 01-JUN-2012
     Route: 042
  11. PIPERACILLIN + TAZOBACTAM [Suspect]
     Indication: PRODUCT USED FOR UNKNOWN INDICATION
     Dosage: LAST ADMINISTERED DATE 01-JUN-2012
     Route: 042
  12. PHENERGAN [Suspect]
     Indication: PRODUCT USED FOR UNKNOWN INDICATION
     Route: 048
     Dates: start: 20120704
  13. ZOFRAN [Suspect]
     Indication: PRODUCT USED FOR UNKNOWN INDICATION
     Route: 042
     Dates: start: 20120704

REACTIONS (38)
  - Tumour lysis syndrome [Fatal]
  - Cardiomyopathy [Fatal]
  - Embolism [Unknown]
  - Delirium [Unknown]
  - Respiratory distress [Unknown]
  - Pulmonary oedema [Unknown]
  - Respiratory failure [Unknown]
  - Pericardial effusion [Unknown]
  - Sinus tachycardia [Unknown]
  - Ventricular fibrillation [Unknown]
  - Ventricular tachycardia [Unknown]
  - Disseminated intravascular coagulation [Unknown]
  - Lung infiltration [Unknown]
  - Pleural effusion [Unknown]
  - Ascites [Unknown]
  - Dilatation ventricular [Unknown]
  - Cardiac failure [Unknown]
  - Hepatic congestion [Unknown]
  - Acidosis [Unknown]
  - Aspartate aminotransferase increased [Unknown]
  - Anaemia [Unknown]
  - Blood creatinine increased [Unknown]
  - Hypocalcaemia [Unknown]
  - Hypertension [Unknown]
  - Hallucination, visual [Unknown]
  - Dyspnoea [Unknown]
  - Atelectasis [Unknown]
  - Mediastinal haemorrhage [Unknown]
  - Activated partial thromboplastin time prolonged [Unknown]
  - Alanine aminotransferase increased [Unknown]
  - Hypotension [Unknown]
  - Abdominal pain [Unknown]
  - Chest pain [Unknown]
  - Hypoperfusion [Unknown]
  - Nausea [Unknown]
  - Ejection fraction decreased [Unknown]
  - Hypoalbuminaemia [Unknown]
  - Vomiting [Unknown]
